FAERS Safety Report 8529851-9 (Version None)
Quarter: 2012Q3

REPORT INFORMATION
  Report Type: 
  Country: None (occurrence: None)
  Receive Date: 20120710
  Receipt Date: 20120628
  Transmission Date: 20120928
  Serious: Yes (Hospitalization, Other)
  Sender: FDA-Public Use
  Company Number: GER/UKI/11/0018916

PATIENT
  Age: 79 Year
  Sex: Female

DRUGS (4)
  1. FLUOXETINE [Suspect]
     Indication: DEPRESSION
     Dosage: 60 MG, 1 D; 40 MG, 1 D
  2. DIAZEPAM [Concomitant]
  3. LEVOTHYROXINE SODIUM [Concomitant]
  4. RANITIDINE [Concomitant]

REACTIONS (11)
  - ABDOMINAL PAIN [None]
  - DEPRESSION [None]
  - OESOPHAGITIS [None]
  - PLATELET DISORDER [None]
  - MELAENA [None]
  - ASPHYXIA [None]
  - GASTROINTESTINAL HAEMORRHAGE [None]
  - SUICIDE ATTEMPT [None]
  - CONDITION AGGRAVATED [None]
  - HAEMOGLOBIN DECREASED [None]
  - DIVERTICULUM [None]
